FAERS Safety Report 10128719 (Version 1)
Quarter: 2014Q2

REPORT INFORMATION
  Report Type: Spontaneous
  Country: DE (occurrence: DE)
  Receive Date: 20140428
  Receipt Date: 20140428
  Transmission Date: 20141212
  Serious: Yes (Other)
  Sender: FDA-Public Use
  Company Number: DE-JNJFOC-20140416373

PATIENT
  Age: 61 Year
  Sex: Male

DRUGS (1)
  1. XARELTO [Suspect]
     Indication: THROMBOSIS
     Route: 048

REACTIONS (2)
  - Pulmonary embolism [Unknown]
  - Drug ineffective [Unknown]
